FAERS Safety Report 20736417 (Version 3)
Quarter: 2022Q3

REPORT INFORMATION
  Report Type: Spontaneous
  Country: JP (occurrence: JP)
  Receive Date: 20220421
  Receipt Date: 20220706
  Transmission Date: 20221026
  Serious: Yes (Hospitalization, Congenital Anomaly, Other)
  Sender: FDA-Public Use
  Company Number: JP-ADVANZ PHARMA-202204002309

PATIENT

DRUGS (2)
  1. HYDROXYCHLOROQUINE SULFATE [Suspect]
     Active Substance: HYDROXYCHLOROQUINE SULFATE
     Indication: Prophylaxis
     Dosage: 200 MG, QD (FILM-COATED TABLET)
     Route: 064
     Dates: start: 2021
  2. HYDROXYCHLOROQUINE SULFATE [Suspect]
     Active Substance: HYDROXYCHLOROQUINE SULFATE
     Dosage: 400 MG, QD (FILM-COATED TABLET)
     Route: 064
     Dates: start: 20210805, end: 20220317

REACTIONS (8)
  - Low birth weight baby [Not Recovered/Not Resolved]
  - Skin malformation [Not Recovered/Not Resolved]
  - Renal dysplasia [Not Recovered/Not Resolved]
  - Dysplasia [Not Recovered/Not Resolved]
  - Conus medullaris syndrome [Not Recovered/Not Resolved]
  - Foetal growth restriction [Not Recovered/Not Resolved]
  - Foetal exposure during pregnancy [Not Recovered/Not Resolved]
  - Off label use [Unknown]

NARRATIVE: CASE EVENT DATE: 20210101
